FAERS Safety Report 6735466-5 (Version None)
Quarter: 2010Q2

REPORT INFORMATION
  Report Type: 
  Country: None (occurrence: None)
  Receive Date: 20100521
  Receipt Date: 20100512
  Transmission Date: 20101027
  Serious: Yes (Other)
  Sender: FDA-Public Use
  Company Number: BR-ASTRAZENECA-2010SE22138

PATIENT
  Age: 70 Year
  Sex: Female

DRUGS (7)
  1. ATENOLOL [Suspect]
     Indication: HYPERTENSION
     Route: 048
     Dates: start: 20091201
  2. ATACAND [Suspect]
     Indication: HYPERTENSION
     Route: 048
     Dates: start: 20060101, end: 20090501
  3. ATACAND [Suspect]
     Route: 048
     Dates: start: 20090501, end: 20090512
  4. GLIMEPIRIDE [Concomitant]
     Indication: DIABETES MELLITUS
     Dates: start: 20020101
  5. METFORMIN HYDROCHLORIDE [Concomitant]
     Indication: DIABETES MELLITUS
     Dates: start: 20020101
  6. SYNTHROID [Concomitant]
     Dates: start: 20040101
  7. NATRILIX [Concomitant]
     Indication: HYPERTENSION
     Dates: start: 20090501

REACTIONS (3)
  - ALLERGIC BRONCHITIS [None]
  - BLOOD PRESSURE INADEQUATELY CONTROLLED [None]
  - BREAST CANCER [None]
